FAERS Safety Report 17768147 (Version 1)
Quarter: 2020Q2

REPORT INFORMATION
  Report Type: Other
  Country: CN (occurrence: CN)
  Receive Date: 20200511
  Receipt Date: 20200511
  Transmission Date: 20200714
  Serious: Yes (Other)
  Sender: FDA-Public Use
  Company Number: CN-GE HEALTHCARE LIFE SCIENCES-2020CSU001898

PATIENT

DRUGS (2)
  1. VISIPAQUE [Suspect]
     Active Substance: IODIXANOL
     Indication: ANGIOCARDIOGRAM
  2. VISIPAQUE [Suspect]
     Active Substance: IODIXANOL
     Indication: ANGINA PECTORIS
     Dosage: 100 ML, SINGLE
     Route: 041
     Dates: start: 20200421, end: 20200421

REACTIONS (3)
  - Skin swelling [Recovering/Resolving]
  - Scleroderma [Recovering/Resolving]
  - Erythema [Recovering/Resolving]

NARRATIVE: CASE EVENT DATE: 20200421
